FAERS Safety Report 6391168-9 (Version None)
Quarter: 2009Q4

REPORT INFORMATION
  Report Type: 
  Country: None (occurrence: None)
  Receive Date: 20091007
  Receipt Date: 20090922
  Transmission Date: 20100525
  Serious: Yes (Death, Hospitalization, Other)
  Sender: FDA-Public Use
  Company Number: US-TYCO HEALTHCARE/MALLINCKRODT-T200901786

PATIENT
  Age: 53 Year
  Sex: Male

DRUGS (4)
  1. MORPHINE [Suspect]
     Indication: CHEST PAIN
     Dosage: UNK
     Route: 042
     Dates: start: 20090919, end: 20090919
  2. METHADOSE [Suspect]
     Dosage: UNK
     Route: 048
     Dates: start: 20090901, end: 20090919
  3. ZOCOR [Concomitant]
     Route: 048
  4. ZESTRIL [Concomitant]
     Indication: HYPERTENSION
     Route: 048

REACTIONS (3)
  - ANXIETY [None]
  - CHEST PAIN [None]
  - DYSPNOEA [None]
